FAERS Safety Report 11750921 (Version 4)
Quarter: 2016Q3

REPORT INFORMATION
  Report Type: Spontaneous
  Country: US (occurrence: US)
  Receive Date: 20151118
  Receipt Date: 20160804
  Transmission Date: 20161109
  Serious: Yes (Death, Other)
  Sender: FDA-Public Use
  Company Number: US-ELI_LILLY_AND_COMPANY-US201511002612

PATIENT
  Age: 51 Year
  Sex: Male
  Weight: 122 kg

DRUGS (8)
  1. AXIRON [Suspect]
     Active Substance: TESTOSTERONE
     Indication: ANDROGEN REPLACEMENT THERAPY
     Dosage: UNK, UNKNOWN
     Route: 062
     Dates: start: 20140621, end: 20140901
  2. PANTOPRAZOLE [Concomitant]
     Active Substance: PANTOPRAZOLE SODIUM
     Indication: DYSPEPSIA
  3. AXIRON [Suspect]
     Active Substance: TESTOSTERONE
     Indication: ERECTILE DYSFUNCTION
  4. MYCOPHENOLATE [Concomitant]
     Active Substance: MYCOPHENOLIC ACID
     Indication: ORGAN TRANSPLANT
     Dosage: UNK
     Route: 065
     Dates: start: 20120206, end: 20140902
  5. PREDNISONE. [Concomitant]
     Active Substance: PREDNISONE
     Indication: ORGAN TRANSPLANT
     Dosage: UNK
     Route: 065
     Dates: start: 20120206, end: 20140902
  6. PANTOPRAZOLE [Concomitant]
     Active Substance: PANTOPRAZOLE SODIUM
     Indication: GASTROOESOPHAGEAL REFLUX DISEASE
     Dosage: UNK
     Route: 065
     Dates: start: 2011, end: 2014
  7. VITAMIN D2 [Concomitant]
     Active Substance: ERGOCALCIFEROL
     Indication: SUPPLEMENTATION THERAPY
     Dosage: UNK
     Route: 065
     Dates: start: 2011, end: 2014
  8. TACROLIMUS. [Concomitant]
     Active Substance: TACROLIMUS
     Indication: ORGAN TRANSPLANT
     Dosage: UNK
     Dates: start: 20120206, end: 20140902

REACTIONS (1)
  - Myocardial infarction [Fatal]

NARRATIVE: CASE EVENT DATE: 20140902
